FAERS Safety Report 15698608 (Version 1)
Quarter: 2018Q4

REPORT INFORMATION
  Report Type: Spontaneous
  Country: IT (occurrence: IT)
  Receive Date: 20181207
  Receipt Date: 20181207
  Transmission Date: 20190205
  Serious: Yes (Other)
  Sender: FDA-Public Use
  Company Number: IT-009507513-1811ITA012599

PATIENT
  Age: 25 Year
  Sex: Female
  Weight: 65 kg

DRUGS (1)
  1. NEXPLANON [Suspect]
     Active Substance: ETONOGESTREL
     Indication: CONTRACEPTION
     Dosage: 68 MILLIGRAM, CYCLICAL
     Route: 058
     Dates: start: 20160803, end: 20181117

REACTIONS (2)
  - Candida infection [Not Recovered/Not Resolved]
  - Gardnerella infection [Not Recovered/Not Resolved]

NARRATIVE: CASE EVENT DATE: 20160803
